FAERS Safety Report 20955839 (Version 1)
Quarter: 2022Q2

REPORT INFORMATION
  Report Type: Spontaneous
  Country: US (occurrence: None)
  Receive Date: 20220614
  Receipt Date: 20220614
  Transmission Date: 20220721
  Serious: Yes (Hospitalization)
  Sender: FDA-Public Use
  Company Number: None

PATIENT
  Age: 76 Year
  Sex: Male
  Weight: 77.2 kg

DRUGS (2)
  1. CYTARABINE [Suspect]
     Active Substance: CYTARABINE
     Dates: end: 20201103
  2. DAUNORUBICIN [Suspect]
     Active Substance: DAUNORUBICIN
     Dates: end: 20201030

REACTIONS (6)
  - Pyrexia [None]
  - Diverticulitis [None]
  - Colonic abscess [None]
  - Diarrhoea [None]
  - Clostridium test positive [None]
  - Aspergillus test positive [None]

NARRATIVE: CASE EVENT DATE: 20201123
